FAERS Safety Report 21326581 (Version 3)
Quarter: 2022Q4

REPORT INFORMATION
  Report Type: Spontaneous
  Country: US (occurrence: US)
  Receive Date: 20220913
  Receipt Date: 20221111
  Transmission Date: 20230113
  Serious: No
  Sender: FDA-Public Use
  Company Number: US-NOVARTISTESTPH-NVSC2022US205170

PATIENT
  Sex: Female

DRUGS (1)
  1. MEKINIST [Suspect]
     Active Substance: TRAMETINIB DIMETHYL SULFOXIDE
     Indication: Ovarian cancer
     Dosage: 2 MG, QD
     Route: 048
     Dates: start: 202208

REACTIONS (11)
  - Chest pain [Unknown]
  - Anxiety [Unknown]
  - Pigmentation disorder [Unknown]
  - Rash [Unknown]
  - Dry skin [Unknown]
  - Pruritus [Unknown]
  - Nausea [Unknown]
  - Rash macular [Unknown]
  - Diarrhoea [Unknown]
  - Vomiting [Unknown]
  - Off label use [Unknown]
